FAERS Safety Report 4577344-6 (Version None)
Quarter: 2005Q1

REPORT INFORMATION
  Report Type: 
  Country: None (occurrence: None)
  Receive Date: 20050210
  Receipt Date: 20050204
  Transmission Date: 20050727
  Serious: Yes (Hospitalization)
  Sender: FDA-Public Use
  Company Number: CA-GLAXOSMITHKLINE-A0544312A

PATIENT
  Age: 22 Year
  Sex: Female
  Weight: 61.4 kg

DRUGS (2)
  1. ZYBAN [Suspect]
     Dosage: 150MG TWICE PER DAY
     Route: 048
     Dates: start: 20050121
  2. DIANE [Concomitant]

REACTIONS (5)
  - ABNORMAL DREAMS [None]
  - FOAMING AT MOUTH [None]
  - GRAND MAL CONVULSION [None]
  - INSOMNIA [None]
  - URINARY INCONTINENCE [None]
